FAERS Safety Report 5143208-2 (Version None)
Quarter: 2006Q4

REPORT INFORMATION
  Report Type: 
  Country: None (occurrence: None)
  Receive Date: 20061103
  Receipt Date: 20061019
  Transmission Date: 20070319
  Serious: Yes (Other)
  Sender: FDA-Public Use
  Company Number: PHBS2006KR16562

PATIENT
  Age: 49 Year
  Sex: Female

DRUGS (5)
  1. ASPIRIN [Concomitant]
  2. TRIMEBUTINE [Concomitant]
     Dosage: 100 MG, UNK
     Route: 048
  3. LACTOBACILLUS ACIDOPHILUS [Concomitant]
     Dosage: 300 MG, UNK
     Route: 048
  4. BIOFLOR [Concomitant]
     Dosage: 250 MG, UNK
  5. ZELMAC [Suspect]
     Route: 048

REACTIONS (5)
  - CYSTITIS-LIKE SYMPTOM [None]
  - DIARRHOEA [None]
  - DYSURIA [None]
  - GENITAL PAIN FEMALE [None]
  - HAEMATURIA [None]
